FAERS Safety Report 8803098 (Version 2)
Quarter: 2012Q4

REPORT INFORMATION
  Report Type: Report from Study
  Country: JP (occurrence: JP)
  Receive Date: 20120924
  Receipt Date: 20121010
  Transmission Date: 20130627
  Serious: Yes (Life-Threatening)
  Sender: FDA-Public Use
  Company Number: JP-NOVOPROD-359850

PATIENT
  Age: 63 Year
  Sex: Male
  Weight: 63 kg

DRUGS (8)
  1. LIRAGLUTIDE FLEXPEN [Suspect]
     Indication: TYPE 2 DIABETES MELLITUS
     Dosage: 0.3 mg, qd
     Route: 058
     Dates: start: 20111220
  2. LIRAGLUTIDE FLEXPEN [Suspect]
     Dosage: 0.6 mg, qd
     Route: 058
     Dates: start: 20111227
  3. LIRAGLUTIDE FLEXPEN [Suspect]
     Dosage: 0.9 mg, qd
     Route: 058
     Dates: start: 20120103, end: 20120703
  4. AMARYL [Concomitant]
     Indication: TYPE 2 DIABETES MELLITUS
     Dosage: 1.5 mg, qd
     Route: 048
     Dates: start: 20111220, end: 20120702
  5. KINEDAK [Concomitant]
     Dosage: /PO
     Route: 048
     Dates: end: 20120702
  6. GLUCOBAY [Concomitant]
     Dosage: 300 mg, qd
     Route: 065
  7. ACTOS [Concomitant]
     Dosage: 15 mg, qd
     Route: 065
  8. GLACTIV [Concomitant]
     Dosage: 50 mg, qd
     Route: 065
     Dates: end: 20111219

REACTIONS (1)
  - Bile duct cancer [Unknown]
